FAERS Safety Report 13301199 (Version 1)
Quarter: 2017Q1

REPORT INFORMATION
  Report Type: Spontaneous
  Country: US (occurrence: US)
  Receive Date: 20170306
  Receipt Date: 20170306
  Transmission Date: 20170428
  Serious: No
  Sender: FDA-Public Use
  Company Number: None

PATIENT
  Age: 69 Year
  Sex: Male

DRUGS (2)
  1. FENTANYL TRANSDERMAL SYSTEM [Suspect]
     Active Substance: FENTANYL
     Indication: SPINAL FUSION SURGERY
     Dosage: ?          OTHER FREQUENCY:EVERY 2 DAYS;?
     Route: 062
     Dates: start: 20131031, end: 20131127
  2. FENTANYL TRANSDERMAL SYSTEM [Suspect]
     Active Substance: FENTANYL
     Indication: PAIN
     Dosage: ?          OTHER FREQUENCY:EVERY 2 DAYS;?
     Route: 062
     Dates: start: 20131031, end: 20131127

REACTIONS (2)
  - Product substitution issue [None]
  - Drug ineffective [None]
